FAERS Safety Report 7865180-4 (Version None)
Quarter: 2011Q4

REPORT INFORMATION
  Report Type: 
  Country: None (occurrence: None)
  Receive Date: 20111028
  Receipt Date: 20101027
  Transmission Date: 20120403
  Serious: No
  Sender: FDA-Public Use
  Company Number: US-GLAXOSMITHKLINE-A0889122A

PATIENT
  Age: 64 Year
  Sex: Female

DRUGS (10)
  1. SINGULAIR [Concomitant]
  2. VENTOLIN [Concomitant]
  3. SYNTHROID [Concomitant]
  4. GABAPENTIN [Concomitant]
  5. ADVAIR DISKUS 100/50 [Suspect]
     Indication: CHRONIC OBSTRUCTIVE PULMONARY DISEASE
     Dosage: 1PUFF TWICE PER DAY
     Route: 055
  6. TRAZODONE HYDROCHLORIDE [Concomitant]
  7. ABILIFY [Concomitant]
  8. THEOPHYLLINE [Concomitant]
  9. LEXAPRO [Concomitant]
  10. SIMVASTATIN [Concomitant]

REACTIONS (2)
  - PRODUCT QUALITY ISSUE [None]
  - IMPAIRED WORK ABILITY [None]
